FAERS Safety Report 5135999-1 (Version None)
Quarter: 2006Q4

REPORT INFORMATION
  Report Type: 
  Country: None (occurrence: None)
  Receive Date: 20061020
  Receipt Date: 20061018
  Transmission Date: 20070319
  Serious: Yes (Hospitalization)
  Sender: FDA-Public Use
  Company Number: TCI2006A04184

PATIENT
  Age: 58 Year
  Sex: Male

DRUGS (12)
  1. LANSOPRAZOLE [Suspect]
     Indication: PROPHYLAXIS AGAINST GASTROINTESTINAL ULCER
     Dosage: 15 MG (15 MG, 1 IN 1 D); PER ORAL
     Route: 048
     Dates: start: 20060405, end: 20060414
  2. PROGRAF [Suspect]
     Indication: IMMUNOSUPPRESSION
     Dosage: SEE IMAGE; PER OAL
     Route: 048
     Dates: end: 20060404
  3. PROGRAF [Suspect]
     Indication: IMMUNOSUPPRESSION
     Dosage: SEE IMAGE; PER OAL
     Route: 048
     Dates: start: 20060405, end: 20060406
  4. PROGRAF [Suspect]
     Indication: IMMUNOSUPPRESSION
     Dosage: SEE IMAGE; PER OAL
     Route: 048
     Dates: start: 20060407, end: 20060407
  5. PROGRAF [Suspect]
     Indication: IMMUNOSUPPRESSION
     Dosage: SEE IMAGE; PER OAL
     Route: 048
     Dates: start: 20060408, end: 20060412
  6. PROGRAF [Suspect]
     Indication: IMMUNOSUPPRESSION
     Dosage: SEE IMAGE; PER OAL
     Route: 048
     Dates: start: 20060413, end: 20060416
  7. PROGRAF [Suspect]
     Indication: IMMUNOSUPPRESSION
     Dosage: SEE IMAGE; PER OAL
     Route: 048
     Dates: start: 20060417
  8. PREDNISOLONE [Concomitant]
  9. CELLCEPT [Concomitant]
  10. AMLODIPINE BESYLATE [Concomitant]
  11. LASIX [Concomitant]
  12. METOPROLOL TARTRATE [Concomitant]

REACTIONS (4)
  - DIABETES MELLITUS INADEQUATE CONTROL [None]
  - DRUG INTERACTION [None]
  - DRUG LEVEL INCREASED [None]
  - HYPERTENSION [None]
